FAERS Safety Report 18031598 (Version 1)
Quarter: 2020Q3

REPORT INFORMATION
  Report Type: Spontaneous
  Country: US (occurrence: US)
  Receive Date: 20200716
  Receipt Date: 20200716
  Transmission Date: 20201103
  Serious: No
  Sender: FDA-Public Use
  Company Number: US-PFIZER INC-2020272177

PATIENT
  Age: 64 Year
  Sex: Female

DRUGS (2)
  1. JYNARQUE [Suspect]
     Active Substance: TOLVAPTAN
     Dosage: UNK
  2. IBRANCE [Suspect]
     Active Substance: PALBOCICLIB
     Dosage: UNK
     Dates: start: 20180713

REACTIONS (4)
  - Swelling face [Unknown]
  - Blood count abnormal [Unknown]
  - Fatigue [Unknown]
  - Abdominal distension [Unknown]
